FAERS Safety Report 23913294 (Version 1)
Quarter: 2024Q2

REPORT INFORMATION
  Report Type: Spontaneous
  Country: FR (occurrence: None)
  Receive Date: 20240529
  Receipt Date: 20240529
  Transmission Date: 20240717
  Serious: Yes (Other)
  Sender: FDA-Public Use
  Company Number: FR-Orion Corporation ORION PHARMA-TREX2024-0125

PATIENT
  Age: 70 Year
  Sex: Female

DRUGS (11)
  1. METHOTREXATE SODIUM [Suspect]
     Active Substance: METHOTREXATE SODIUM
     Indication: Lymphocytic leukaemia
     Dosage: STRENGTH: 10 MG
     Dates: start: 20240201
  2. METHOTREXATE SODIUM [Suspect]
     Active Substance: METHOTREXATE SODIUM
     Dosage: STRENGTH: 10 MG, ON THURSDAYS
  3. SALAGEN [Concomitant]
     Active Substance: PILOCARPINE HYDROCHLORIDE
     Dosage: 1 TABLET; MORNING, MIDDAY AND EVENING
  4. ACTONEL [Concomitant]
     Active Substance: RISEDRONATE SODIUM
  5. ROSUVASTATIN [Concomitant]
     Active Substance: ROSUVASTATIN
     Dosage: STRENGTH: 5 MG; EVERY EVENING
  6. CALCIDOSE [Concomitant]
     Dosage: MORNING
  7. CALCIFEDIOL [Concomitant]
     Active Substance: CALCIFEDIOL
     Dosage: 2/3 DROPS
  8. MIRABEGRON [Concomitant]
     Active Substance: MIRABEGRON
  9. LACTOBACILLUS RHAMNOSUS [Concomitant]
     Active Substance: LACTOBACILLUS RHAMNOSUS
  10. ESTRIOL [Concomitant]
     Active Substance: ESTRIOL
  11. POTASSIUM BITARTRATE\SODIUM BICARBONATE [Concomitant]
     Active Substance: POTASSIUM BITARTRATE\SODIUM BICARBONATE
     Dosage: AS NEEDED

REACTIONS (9)
  - Product dose confusion [Recovered/Resolved]
  - Faeces discoloured [Recovered/Resolved]
  - Abnormal faeces [Recovered/Resolved]
  - Asthenia [Recovered/Resolved]
  - Dyspepsia [Recovering/Resolving]
  - Abdominal pain upper [Recovering/Resolving]
  - Product use in unapproved indication [Unknown]
  - Overdose [Unknown]
  - Product dispensing error [Unknown]

NARRATIVE: CASE EVENT DATE: 20240101
